FAERS Safety Report 16694564 (Version 1)
Quarter: 2019Q3

REPORT INFORMATION
  Report Type: Spontaneous
  Country: US (occurrence: US)
  Receive Date: 20190812
  Receipt Date: 20190812
  Transmission Date: 20191004
  Serious: Yes (Hospitalization)
  Sender: FDA-Public Use
  Company Number: US-ANIPHARMA-2019-US-013272

PATIENT
  Age: 18 Year
  Sex: Male

DRUGS (3)
  1. RISPERIDONE (NON-SPECIFIC) [Suspect]
     Active Substance: RISPERIDONE
     Indication: NEURODEVELOPMENTAL DISORDER
     Dosage: 0.5 MG 3 TIMES DAILY
     Route: 048
  2. VALPROIC ACID. [Concomitant]
     Active Substance: VALPROIC ACID
     Dosage: 500 MG EVERY AFTERNOON
     Route: 048
  3. CLONIDINE. [Concomitant]
     Active Substance: CLONIDINE
     Dosage: 0.1 MG 3 TIMES DAILY
     Route: 048

REACTIONS (1)
  - Catatonia [Recovered/Resolved]
